FAERS Safety Report 25397238 (Version 1)
Quarter: 2025Q2

REPORT INFORMATION
  Report Type: Spontaneous
  Country: US (occurrence: US)
  Receive Date: 20250604
  Receipt Date: 20250604
  Transmission Date: 20250717
  Serious: No
  Sender: GALPHARM INTERNATIONAL
  Company Number: US-PERRIGO-24US004338

PATIENT
  Sex: Male

DRUGS (2)
  1. MINOXIDIL [Suspect]
     Active Substance: MINOXIDIL
     Indication: Product used for unknown indication
     Route: 061
  2. MINOXIDIL [Suspect]
     Active Substance: MINOXIDIL
     Route: 061

REACTIONS (3)
  - Application site rash [Unknown]
  - Application site dryness [Unknown]
  - Application site irritation [Unknown]
